FAERS Safety Report 23145818 (Version 2)
Quarter: 2024Q1

REPORT INFORMATION
  Report Type: Spontaneous
  Country: US (occurrence: None)
  Receive Date: 20231103
  Receipt Date: 20240109
  Transmission Date: 20240410
  Serious: Yes (Life-Threatening)
  Sender: FDA-Public Use
  Company Number: US-ROCHE-3450082

PATIENT
  Sex: Male
  Weight: 85.806 kg

DRUGS (1)
  1. OCREVUS [Suspect]
     Active Substance: OCRELIZUMAB
     Indication: Multiple sclerosis
     Route: 042
     Dates: start: 202202, end: 202303

REACTIONS (1)
  - Bone giant cell tumour [Recovered/Resolved]

NARRATIVE: CASE EVENT DATE: 20230815
